FAERS Safety Report 7207062-7 (Version None)
Quarter: 2011Q1

REPORT INFORMATION
  Report Type: 
  Country: None (occurrence: None)
  Receive Date: 20110103
  Receipt Date: 20101221
  Transmission Date: 20110831
  Serious: Yes (Life-Threatening)
  Sender: FDA-Public Use
  Company Number: B0691465A

PATIENT
  Sex: Female
  Weight: 59 kg

DRUGS (2)
  1. KIVEXA [Suspect]
     Indication: HIV INFECTION
     Dosage: 600MG PER DAY
     Route: 048
     Dates: start: 20101018, end: 20101203
  2. KALETRA [Concomitant]
     Indication: HIV INFECTION
     Dates: start: 20080404

REACTIONS (5)
  - VOMITING [None]
  - CHILLS [None]
  - NAUSEA [None]
  - NASAL CONGESTION [None]
  - DIARRHOEA [None]
